FAERS Safety Report 5449092-1 (Version None)
Quarter: 2007Q3

REPORT INFORMATION
  Report Type: 
  Country: None (occurrence: None)
  Receive Date: 20070911
  Receipt Date: 20070831
  Transmission Date: 20080115
  Serious: Yes (Hospitalization)
  Sender: FDA-Public Use
  Company Number: US-SANOFI-SYNTHELABO-A03200705393

PATIENT
  Sex: Male

DRUGS (2)
  1. AMBIEN [Suspect]
     Indication: DRUG USE FOR UNKNOWN INDICATION
     Route: 048
  2. AMBIEN [Suspect]
     Route: 048

REACTIONS (3)
  - ABNORMAL BEHAVIOUR [None]
  - ACCIDENTAL OVERDOSE [None]
  - CONVULSION [None]
